FAERS Safety Report 18104965 (Version 1)
Quarter: 2020Q3

REPORT INFORMATION
  Report Type: Spontaneous
  Country: FR (occurrence: FR)
  Receive Date: 20200804
  Receipt Date: 20200804
  Transmission Date: 20201103
  Serious: Yes (Other)
  Sender: FDA-Public Use
  Company Number: FR-AUROBINDO-AUR-APL-2020-037187

PATIENT
  Age: 66 Year
  Sex: Male

DRUGS (4)
  1. VICTAN [Suspect]
     Active Substance: ETHYL LOFLAZEPATE
     Indication: ALCOHOL WITHDRAWAL SYNDROME
     Dosage: 1 DOSAGE FORM, ONCE A DAY
     Route: 065
  2. VICTAN [Suspect]
     Active Substance: ETHYL LOFLAZEPATE
     Dosage: 0.5 DOSAGE FORM, ONCE A DAY
     Route: 065
  3. PAROXETINE. [Suspect]
     Active Substance: PAROXETINE
     Indication: ANXIETY
     Dosage: 1 DOSAGE FORM, ONCE A DAY
     Route: 065
  4. VICTAN [Suspect]
     Active Substance: ETHYL LOFLAZEPATE
     Dosage: 2 DOSAGE FORM, ONCE A DAY
     Route: 065

REACTIONS (8)
  - Intentional product use issue [Unknown]
  - Anxiety [Unknown]
  - Suicidal ideation [Unknown]
  - Tremor [Unknown]
  - Thinking abnormal [Unknown]
  - Malaise [Unknown]
  - Product availability issue [Unknown]
  - Wrong technique in product usage process [Unknown]
